FAERS Safety Report 25582341 (Version 1)
Quarter: 2025Q3

REPORT INFORMATION
  Report Type: Spontaneous
  Country: EU (occurrence: EU)
  Receive Date: 20250720
  Receipt Date: 20250720
  Transmission Date: 20251020
  Serious: Yes (Other)
  Sender: AUROBINDO
  Company Number: EU-AUROBINDO-AUR-APL-2016-10246

PATIENT
  Age: 51 Year
  Sex: Male

DRUGS (4)
  1. CLOZAPINE [Suspect]
     Active Substance: CLOZAPINE
     Indication: Schizophrenia
     Route: 065
  2. GABAPENTIN [Concomitant]
     Active Substance: GABAPENTIN
     Indication: Seizure
     Dosage: 3000 MILLIGRAM, ONCE A DAY
     Route: 065
  3. CLONAZEPAM [Concomitant]
     Active Substance: CLONAZEPAM
     Indication: Seizure
     Dosage: 1.5 MILLIGRAM, ONCE A DAY
     Route: 065
  4. VALPROIC ACID [Concomitant]
     Active Substance: VALPROIC ACID
     Indication: Product used for unknown indication
     Route: 065

REACTIONS (4)
  - Parkinsonism [Not Recovered/Not Resolved]
  - Tardive dyskinesia [Not Recovered/Not Resolved]
  - Muscle twitching [Not Recovered/Not Resolved]
  - Reduced facial expression [Not Recovered/Not Resolved]
